FAERS Safety Report 15590639 (Version 1)
Quarter: 2018Q4

REPORT INFORMATION
  Report Type: Spontaneous
  Country: NZ (occurrence: NZ)
  Receive Date: 20181106
  Receipt Date: 20181106
  Transmission Date: 20190205
  Serious: Yes (Other)
  Sender: FDA-Public Use
  Company Number: NZ-EMD SERONO-9050054

PATIENT
  Sex: Female

DRUGS (1)
  1. METRODIN [Suspect]
     Active Substance: UROFOLLITROPIN
     Indication: ASSISTED FERTILISATION
     Dates: start: 1994

REACTIONS (1)
  - Creutzfeldt-Jakob disease [Unknown]
